FAERS Safety Report 13149220 (Version 1)
Quarter: 2017Q1

REPORT INFORMATION
  Report Type: Spontaneous
  Country: US (occurrence: US)
  Receive Date: 20170124
  Receipt Date: 20170124
  Transmission Date: 20170428
  Serious: Yes (Death, Hospitalization, Disabling)
  Sender: FDA-Public Use
  Company Number: None

PATIENT
  Age: 70 Year
  Sex: Male
  Weight: 112.04 kg

DRUGS (1)
  1. DEXAMETHASONE 4 MG TAB ROXANE [Suspect]
     Active Substance: DEXAMETHASONE
     Indication: INFLAMMATION
     Route: 048
     Dates: start: 20161204, end: 20161218

REACTIONS (9)
  - Skin discolouration [None]
  - Malnutrition [None]
  - Eructation [None]
  - Faecal vomiting [None]
  - Hiccups [None]
  - Oesophageal ulcer [None]
  - Oedema [None]
  - Alopecia [None]
  - Dehydration [None]

NARRATIVE: CASE EVENT DATE: 20161206
